FAERS Safety Report 9358110 (Version 2)
Quarter: 2013Q3

REPORT INFORMATION
  Report Type: Spontaneous
  Country: US (occurrence: US)
  Receive Date: 20130620
  Receipt Date: 20130705
  Transmission Date: 20140515
  Serious: Yes (Death, Hospitalization)
  Sender: FDA-Public Use
  Company Number: US-B.I. PHARMACEUTICALS,INC./RIDGEFIELD-2013-BI-17235BP

PATIENT
  Age: 57 Year
  Sex: Male

DRUGS (4)
  1. PRADAXA [Suspect]
     Indication: ATRIAL FIBRILLATION
     Dosage: 300 MG
     Route: 048
     Dates: start: 201102
  2. METFORMIN [Concomitant]
  3. TAPAZOLE (METHIMAZOLE) [Concomitant]
     Indication: HYPERTHYROIDISM
  4. STATINS [Concomitant]

REACTIONS (4)
  - Aneurysm ruptured [Fatal]
  - Subarachnoid haemorrhage [Fatal]
  - Influenza [Unknown]
  - Rectal haemorrhage [Recovered/Resolved]
